FAERS Safety Report 15463681 (Version 2)
Quarter: 2018Q4

REPORT INFORMATION
  Report Type: Spontaneous
  Country: DE (occurrence: DE)
  Receive Date: 20181004
  Receipt Date: 20181009
  Transmission Date: 20190204
  Serious: Yes (Other)
  Sender: FDA-Public Use
  Company Number: PHHY2018DE112076

PATIENT
  Sex: Male

DRUGS (2)
  1. ENTRESTO [Suspect]
     Active Substance: SACUBITRIL\VALSARTAN
     Indication: PRODUCT USED FOR UNKNOWN INDICATION
     Dosage: 0.5 DF, QD
     Route: 065
     Dates: start: 2017, end: 201809
  2. SPIRONOLACTONE. [Suspect]
     Active Substance: SPIRONOLACTONE
     Indication: PRODUCT USED FOR UNKNOWN INDICATION
     Dosage: UNK
     Route: 065

REACTIONS (7)
  - Haematoma [Unknown]
  - Breast pain [Unknown]
  - Inappropriate schedule of product administration [Unknown]
  - Breast neoplasm [Unknown]
  - Wrong technique in product usage process [Unknown]
  - Nipple pain [Unknown]
  - Nipple enlargement [Unknown]

NARRATIVE: CASE EVENT DATE: 2018
